FAERS Safety Report 7617990-6 (Version None)
Quarter: 2011Q3

REPORT INFORMATION
  Report Type: 
  Country: None (occurrence: None)
  Receive Date: 20110718
  Receipt Date: 20110712
  Transmission Date: 20111222
  Serious: Yes (Other)
  Sender: FDA-Public Use
  Company Number: US-TEVA-286677USA

PATIENT
  Sex: Female

DRUGS (2)
  1. CLARAVIS [Suspect]
     Route: 048
     Dates: end: 20110520
  2. ESCITALOPRAM OXALATE [Concomitant]

REACTIONS (2)
  - SUICIDAL IDEATION [None]
  - MOOD ALTERED [None]
